FAERS Safety Report 8505799-0 (Version None)
Quarter: 2012Q2

REPORT INFORMATION
  Report Type: 
  Country: None (occurrence: None)
  Receive Date: 20120629
  Receipt Date: 20120614
  Transmission Date: 20120825
  Serious: Yes (Other)
  Sender: FDA-Public Use
  Company Number: ENTC2012-0274

PATIENT
  Sex: Male

DRUGS (3)
  1. STALEVO 50 [Suspect]
     Dosage: 500 MG (100 MG,5 IN 1 D),  200 MG (100 MG,2 IN 1 D)
  2. PRAMIPEXOLE DIHYDROCHLORIDE [Concomitant]
  3. SINEMET [Concomitant]

REACTIONS (2)
  - PSYCHOTIC DISORDER [None]
  - AGGRESSION [None]
